FAERS Safety Report 22541761 (Version 1)
Quarter: 2023Q2

REPORT INFORMATION
  Report Type: Spontaneous
  Country: US (occurrence: None)
  Receive Date: 20230608
  Receipt Date: 20230608
  Transmission Date: 20230721
  Serious: Yes (Hospitalization)
  Sender: FDA-Public Use
  Company Number: None

PATIENT
  Age: 85 Year
  Sex: Male
  Weight: 77.11 kg

DRUGS (26)
  1. PROMACTA [Suspect]
     Active Substance: ELTROMBOPAG OLAMINE
     Indication: Myelodysplastic syndrome
     Dosage: FREQUENCY : DAILY;?
     Route: 048
     Dates: start: 202004
  2. AMLODIPINE [Concomitant]
  3. ATORVASTATIN [Concomitant]
  4. FLONASE [Concomitant]
     Active Substance: FLUTICASONE PROPIONATE
  5. FLOVENT [Concomitant]
  6. GABAPENTIN [Concomitant]
  7. GLYCOLAX [Concomitant]
     Active Substance: POLYETHYLENE GLYCOL 3350
  8. LABETALOL [Concomitant]
  9. LACTOBACILLUS ACIDOPHILUS [Concomitant]
     Active Substance: LACTOBACILLUS ACIDOPHILUS
  10. LACTULOSE [Concomitant]
     Active Substance: LACTULOSE
  11. LORATADINE [Concomitant]
     Active Substance: LORATADINE
  12. LORAZEPAM [Concomitant]
  13. LOTRISONE [Concomitant]
     Active Substance: BETAMETHASONE DIPROPIONATE\CLOTRIMAZOLE
  14. MULTIVITAMIN [Concomitant]
  15. OLOPATADINE [Concomitant]
  16. OMEPRAZOLE [Concomitant]
  17. OMEPRAZOLE [Concomitant]
     Active Substance: OMEPRAZOLE
  18. ONDANSETRON [Concomitant]
  19. OXYCODONE [Concomitant]
  20. PEPCID [Concomitant]
     Active Substance: FAMOTIDINE
  21. PROCHLORPERAZINE [Concomitant]
  22. PROVENTIL [Concomitant]
  23. SENNOSIDES [Concomitant]
     Active Substance: SENNOSIDES
  24. TRAMADOL [Concomitant]
     Active Substance: TRAMADOL
  25. TRAZODONE [Concomitant]
  26. VALSARTAN [Concomitant]
     Active Substance: VALSARTAN

REACTIONS (1)
  - Haemoglobin decreased [None]

NARRATIVE: CASE EVENT DATE: 20230607
